FAERS Safety Report 6711955-4 (Version None)
Quarter: 2010Q2

REPORT INFORMATION
  Report Type: 
  Country: None (occurrence: None)
  Receive Date: 20100505
  Receipt Date: 20100423
  Transmission Date: 20101027
  Serious: Yes (Other)
  Sender: FDA-Public Use
  Company Number: JP-PFIZER INC-2010028834

PATIENT
  Age: 63 Year
  Sex: Female

DRUGS (15)
  1. SOLANAX [Suspect]
     Dosage: 0.4 MG, 1X/DAY
     Route: 048
  2. TRAVELMIN [Suspect]
     Indication: NAUSEA
     Dosage: 1 TABLET 3X/DAY
     Route: 048
     Dates: start: 20100115, end: 20100304
  3. BROTIZOLAM [Concomitant]
     Dosage: UNK
     Route: 048
  4. DIGOSIN [Concomitant]
     Dosage: UNK
     Route: 048
  5. MAINTATE [Concomitant]
     Dosage: UNK
     Route: 048
  6. FLUITRAN [Concomitant]
     Dosage: UNK
     Route: 048
  7. COTRIM [Concomitant]
     Dosage: UNK
     Route: 048
  8. TORASEMIDE [Concomitant]
     Dosage: UNK
     Route: 048
  9. MONTELUKAST SODIUM [Concomitant]
     Dosage: UNK
     Route: 048
  10. PARIET [Concomitant]
     Dosage: UNK
     Route: 048
  11. NATEGLINIDE [Concomitant]
     Dosage: UNK
     Route: 048
  12. TAMBOCOR [Concomitant]
     Dosage: UNK
     Route: 048
  13. SENNOSIDES [Concomitant]
     Dosage: UNK
     Route: 048
  14. ALENDRONATE SODIUM [Concomitant]
     Dosage: UNK
     Route: 048
  15. MORPHINE SULFATE HYDRATE [Concomitant]
     Route: 048

REACTIONS (3)
  - ASTHENIA [None]
  - PARAESTHESIA [None]
  - RESTLESS LEGS SYNDROME [None]
